FAERS Safety Report 7555493-8 (Version None)
Quarter: 2011Q2

REPORT INFORMATION
  Report Type: 
  Country: None (occurrence: None)
  Receive Date: 20110617
  Receipt Date: 20110614
  Transmission Date: 20111010
  Serious: Yes (Hospitalization, Other)
  Sender: FDA-Public Use
  Company Number: US-PFIZER INC-2011098538

PATIENT
  Sex: Male
  Weight: 22.222 kg

DRUGS (4)
  1. SOLU-MEDROL [Suspect]
     Indication: RESPIRATORY DISTRESS
     Dosage: 125 MG, UNK
     Route: 030
     Dates: start: 20110505, end: 20110505
  2. SOLU-MEDROL [Suspect]
     Indication: ASTHMA
  3. ATIVAN [Concomitant]
     Dosage: UNK
  4. VERSED [Concomitant]
     Dosage: UNK

REACTIONS (3)
  - RASH [None]
  - RESPIRATORY DISTRESS [None]
  - FLUSHING [None]
